FAERS Safety Report 24629824 (Version 2)
Quarter: 2025Q1

REPORT INFORMATION
  Report Type: Spontaneous
  Country: US (occurrence: US)
  Receive Date: 20241118
  Receipt Date: 20250120
  Transmission Date: 20250408
  Serious: No
  Sender: LEO PHARM
  Company Number: US-LEO Pharma-375077

PATIENT
  Age: 33 Year
  Sex: Male

DRUGS (1)
  1. ADBRY [Suspect]
     Active Substance: TRALOKINUMAB-LDRM
     Indication: Dermatitis atopic
     Dates: start: 202409

REACTIONS (6)
  - Paranasal sinus discomfort [Recovered/Resolved]
  - Cough [Recovered/Resolved]
  - Gastroenteritis viral [Unknown]
  - Malaise [Unknown]
  - Rash macular [Unknown]
  - Discomfort [Unknown]
